FAERS Safety Report 19376248 (Version 1)
Quarter: 2021Q2

REPORT INFORMATION
  Report Type: Spontaneous
  Country: US (occurrence: US)
  Receive Date: 20210604
  Receipt Date: 20210604
  Transmission Date: 20210717
  Serious: No
  Sender: FDA-Public Use
  Company Number: US-MATRIXX INITIATIVES, INC.-2112357

PATIENT
  Age: 50 Year
  Sex: Female

DRUGS (2)
  1. ZICAM COLD REMEDY NASAL SPRAY [Suspect]
     Active Substance: HOMEOPATHICS
     Indication: NASAL CONGESTION
     Route: 045
     Dates: start: 20210601, end: 20210601
  2. ZICAM COLD REMEDY RAPIDMELTS [Suspect]
     Active Substance: HOMEOPATHICS\ZINC ACETATE\ZINC GLUCONATE
     Route: 048
     Dates: start: 20210601, end: 20210601

REACTIONS (2)
  - Anosmia [Recovered/Resolved]
  - Rhinalgia [Recovered/Resolved]
